FAERS Safety Report 8404758-6 (Version None)
Quarter: 2012Q2

REPORT INFORMATION
  Report Type: 
  Country: None (occurrence: None)
  Receive Date: 20120601
  Receipt Date: 20120522
  Transmission Date: 20120825
  Serious: Yes (Hospitalization, Other)
  Sender: FDA-Public Use
  Company Number: KR-ELI_LILLY_AND_COMPANY-KR201205008270

PATIENT
  Sex: Male
  Weight: 109.2 kg

DRUGS (5)
  1. EXENATIDE [Suspect]
     Indication: TYPE 2 DIABETES MELLITUS
     Dosage: 5 UG, BID
     Route: 058
     Dates: start: 20120215, end: 20120406
  2. GLUCOPHAGE [Concomitant]
     Indication: DIABETES MELLITUS
     Dosage: UNK
     Dates: start: 20111012
  3. MUNOBAL [Concomitant]
     Indication: HYPERTENSION
     Dosage: UNK
     Dates: start: 20031111
  4. DIAMICRON [Concomitant]
     Indication: DIABETES MELLITUS
     Dosage: UNK
     Dates: start: 20110817
  5. LAMIVUDINE [Concomitant]
     Indication: CHRONIC HEPATITIS
     Dosage: UNK
     Dates: start: 20060807

REACTIONS (2)
  - PITUITARY CYST [None]
  - DIPLOPIA [None]
